FAERS Safety Report 18769952 (Version 1)
Quarter: 2021Q1

REPORT INFORMATION
  Report Type: Report from Study
  Country: FR (occurrence: FR)
  Receive Date: 20210121
  Receipt Date: 20210121
  Transmission Date: 20210419
  Serious: Yes (Hospitalization)
  Sender: FDA-Public Use
  Company Number: FR-MYLANLABS-2021M1003273

PATIENT
  Age: 83 Year
  Sex: Male
  Weight: 69 kg

DRUGS (8)
  1. FLUOROURACIL. [Suspect]
     Active Substance: FLUOROURACIL
     Indication: COLORECTAL CANCER METASTATIC
     Dosage: 750 MG, QCY
     Route: 042
     Dates: start: 20180627, end: 20180627
  2. FLUOROURACIL. [Suspect]
     Active Substance: FLUOROURACIL
     Dosage: 750 MG, QCY
     Route: 042
     Dates: start: 20180906, end: 20180906
  3. FOLINIC ACID [Suspect]
     Active Substance: LEUCOVORIN
     Dosage: 744 MG, QCY
     Route: 042
     Dates: start: 20180906, end: 20180906
  4. FLUOROURACIL. [Suspect]
     Active Substance: FLUOROURACIL
     Dosage: 4450 MG, QCY
     Route: 040
     Dates: start: 20180627, end: 20180627
  5. FOLINIC ACID [Suspect]
     Active Substance: LEUCOVORIN
     Indication: COLORECTAL CANCER METASTATIC
     Dosage: 744 MG, QCY
     Route: 042
     Dates: start: 20180627, end: 20180627
  6. ZALTRAP [Suspect]
     Active Substance: ZIV-AFLIBERCEPT
     Indication: COLORECTAL CANCER METASTATIC
     Dosage: 287 MG, QCY
     Route: 042
     Dates: start: 20180627, end: 20180627
  7. ZALTRAP [Suspect]
     Active Substance: ZIV-AFLIBERCEPT
     Dosage: 287 MG, QCY
     Route: 042
     Dates: start: 20180906, end: 20180906
  8. FLUOROURACIL. [Suspect]
     Active Substance: FLUOROURACIL
     Dosage: 4450 MG, QCY
     Route: 040
     Dates: start: 20180906, end: 20180906

REACTIONS (4)
  - Disorientation [Recovered/Resolved]
  - Confusional state [Recovered/Resolved]
  - Agitation [Recovered/Resolved]
  - Cerebrovascular accident [Recovered/Resolved]

NARRATIVE: CASE EVENT DATE: 20180907
